FAERS Safety Report 9744074 (Version 1)
Quarter: 2013Q4

REPORT INFORMATION
  Report Type: Spontaneous
  Country: FR (occurrence: FR)
  Receive Date: 20131210
  Receipt Date: 20131210
  Transmission Date: 20140711
  Serious: Yes (Hospitalization)
  Sender: FDA-Public Use
  Company Number: FR-GLAXOSMITHKLINE-B0949659A

PATIENT
  Age: 80 Year
  Sex: Male

DRUGS (12)
  1. ZELITREX [Suspect]
     Indication: PRODUCT USED FOR UNKNOWN INDICATION
     Dosage: 500MG PER DAY
     Route: 048
     Dates: start: 20130404, end: 20130909
  2. IKOREL [Concomitant]
     Route: 065
  3. PLAVIX [Concomitant]
     Route: 065
  4. DIAMICRON [Concomitant]
     Route: 065
     Dates: end: 2013
  5. ZOCOR [Concomitant]
     Route: 065
  6. NEBIVOLOL [Concomitant]
     Route: 065
  7. KARDEGIC [Concomitant]
     Route: 065
  8. SPECIAFOLDINE [Concomitant]
     Route: 065
  9. CETIRIZINE [Concomitant]
     Route: 065
  10. BACTRIM [Concomitant]
     Dates: end: 201304
  11. FLUDARABINE [Concomitant]
     Indication: CHRONIC LYMPHOCYTIC LEUKAEMIA
     Dates: start: 201211, end: 201302
  12. ENDOXAN [Concomitant]
     Indication: CHRONIC LYMPHOCYTIC LEUKAEMIA
     Dates: start: 201211, end: 201302

REACTIONS (1)
  - Febrile neutropenia [Not Recovered/Not Resolved]
